FAERS Safety Report 13391142 (Version 1)
Quarter: 2017Q1

REPORT INFORMATION
  Report Type: Spontaneous
  Country: US (occurrence: US)
  Receive Date: 20170331
  Receipt Date: 20170331
  Transmission Date: 20170429
  Serious: No
  Sender: FDA-Public Use
  Company Number: US-GLAXOSMITHKLINE-US2017040732

PATIENT
  Sex: Female

DRUGS (2)
  1. FLONASE [Suspect]
     Active Substance: FLUTICASONE PROPIONATE
     Indication: HYPERSENSITIVITY
     Dosage: UNK
     Dates: start: 201608
  2. FLONASE [Suspect]
     Active Substance: FLUTICASONE PROPIONATE
     Indication: ASTHMA

REACTIONS (8)
  - Nasal discomfort [Unknown]
  - Off label use [Unknown]
  - Epistaxis [Unknown]
  - Cautery to nose [Unknown]
  - Nasal septum deviation [Unknown]
  - Incorrect dosage administered [Unknown]
  - Rhinitis [Unknown]
  - Dyspnoea [Unknown]

NARRATIVE: CASE EVENT DATE: 201611
